FAERS Safety Report 6559694-7 (Version None)
Quarter: 2010Q1

REPORT INFORMATION
  Report Type: 
  Country: None (occurrence: None)
  Receive Date: 20100129
  Receipt Date: 20090904
  Transmission Date: 20100710
  Serious: No
  Sender: FDA-Public Use
  Company Number: US-ABBOTT-09P-163-0596176-00

PATIENT
  Sex: Male

DRUGS (7)
  1. HUMIRA [Suspect]
     Indication: RHEUMATOID ARTHRITIS
     Route: 058
     Dates: start: 20081008, end: 20090801
  2. METHOTREXATE [Concomitant]
     Indication: RHEUMATOID ARTHRITIS
     Dosage: UNKNOWN
     Route: 065
  3. FOLIC ACID [Concomitant]
     Indication: MEDICAL DIET
     Dosage: UNKNOWN
     Route: 048
  4. VICODIN [Concomitant]
     Indication: PAIN
     Dosage: UNKNOWN
     Route: 048
  5. FENTANYL [Concomitant]
     Indication: PAIN
     Dosage: UNKNOWN
     Route: 062
  6. UNKNOWN STOOL SOFTENER [Concomitant]
     Indication: CONSTIPATION
     Dosage: UNKNOWN
     Route: 065
  7. CELEBREX [Concomitant]
     Indication: ARTHRALGIA
     Dosage: UNKNOWN
     Route: 048

REACTIONS (4)
  - ARTHRALGIA [None]
  - DRUG INEFFECTIVE [None]
  - OEDEMA PERIPHERAL [None]
  - PAIN IN EXTREMITY [None]
